FAERS Safety Report 7831786-1 (Version None)
Quarter: 2011Q4

REPORT INFORMATION
  Report Type: 
  Country: None (occurrence: None)
  Receive Date: 20111021
  Receipt Date: 20111020
  Transmission Date: 20120403
  Serious: Yes (Other)
  Sender: FDA-Public Use
  Company Number: US-PFIZER INC-2011254251

PATIENT
  Sex: Female
  Weight: 54.875 kg

DRUGS (3)
  1. AMLODIPINE BESILATE [Concomitant]
     Indication: HYPERTENSION
     Dosage: 2.5 MG, DAILY
  2. METOPROLOL [Concomitant]
     Indication: HYPERTENSION
     Dosage: 50 MG, 2X/DAY
  3. IBUPROFEN (ADVIL) [Suspect]
     Indication: SCIATICA
     Dosage: UNK
     Dates: start: 20100101

REACTIONS (1)
  - CHOKING [None]
